FAERS Safety Report 6856476-3 (Version None)
Quarter: 2010Q3

REPORT INFORMATION
  Report Type: 
  Country: None (occurrence: None)
  Receive Date: 20100719
  Receipt Date: 20100709
  Transmission Date: 20110219
  Serious: Yes (Other)
  Sender: FDA-Public Use
  Company Number: JP-ROCHE-711869

PATIENT
  Sex: Male
  Weight: 63.6 kg

DRUGS (15)
  1. TOCILIZUMAB [Suspect]
     Indication: CASTLEMAN'S DISEASE
     Route: 041
     Dates: start: 20080626, end: 20080722
  2. TOCILIZUMAB [Suspect]
     Route: 041
     Dates: start: 20080731, end: 20080912
  3. TOCILIZUMAB [Suspect]
     Route: 041
     Dates: start: 20080919, end: 20090605
  4. TOCILIZUMAB [Suspect]
     Route: 041
     Dates: start: 20090615, end: 20090727
  5. TOCILIZUMAB [Suspect]
     Route: 041
     Dates: start: 20090806
  6. LENDORMIN [Concomitant]
     Route: 048
     Dates: start: 20080610, end: 20081002
  7. LENDORMIN [Concomitant]
     Route: 048
     Dates: start: 20081003
  8. PREDONINE [Concomitant]
     Route: 048
     Dates: start: 20080731, end: 20081002
  9. PREDONINE [Concomitant]
     Route: 048
     Dates: start: 20081003
  10. ALTAT [Concomitant]
     Dosage: DOSEFORM: SUSTAINED RELEASE CAPSULE
     Route: 048
     Dates: start: 20080731
  11. SELBEX [Concomitant]
     Dosage: DOSEFORM: PERORAL AGENT
     Route: 048
     Dates: start: 20080731, end: 20081016
  12. POLARAMINE [Concomitant]
     Dosage: DOSEDORM: PERORAL AGENT
     Route: 048
     Dates: start: 20080731, end: 20080904
  13. FERROMIA [Concomitant]
     Dosage: DOSEFORM: PERORAL AGENT
     Route: 048
     Dates: start: 20080912, end: 20081009
  14. CINAL [Concomitant]
     Dosage: DOSE: 1 DF, DOSEFORM: PERORAL AGENT
     Route: 048
     Dates: start: 20080912, end: 20081009
  15. MARZULENE-S [Concomitant]
     Dosage: DOSEFORM: GRANULATED POWDER
     Route: 048
     Dates: start: 20080912, end: 20081009

REACTIONS (1)
  - LYMPHOCYTE COUNT DECREASED [None]
